FAERS Safety Report 5880043-1 (Version None)
Quarter: 2008Q3

REPORT INFORMATION
  Report Type: 
  Country: None (occurrence: None)
  Receive Date: 20080912
  Receipt Date: 20080903
  Transmission Date: 20090109
  Serious: Yes (Life-Threatening)
  Sender: FDA-Public Use
  Company Number: JP-ABBOTT-08P-087-0459709-00

PATIENT
  Sex: Male

DRUGS (10)
  1. LEUPROLIDE ACETATE [Suspect]
     Indication: PROSTATE CANCER
     Route: 058
     Dates: start: 20060221, end: 20080610
  2. LEUPROLIDE ACETATE [Suspect]
     Dates: start: 20051227, end: 20060221
  3. BICALUTAMIDE [Concomitant]
     Indication: PROSTATE CANCER
     Route: 048
     Dates: start: 20060613, end: 20080311
  4. DIOVAN HCT [Concomitant]
     Indication: HYPERTENSION
     Route: 048
     Dates: start: 19991007, end: 20080618
  5. AMLODIPINE BESYLATE [Concomitant]
     Indication: HYPERTENSION
     Route: 048
     Dates: start: 19991007, end: 20080618
  6. LAFUTIDINE [Concomitant]
     Indication: GASTRIC ULCER
     Route: 048
     Dates: start: 20011006, end: 20080528
  7. ALLOPURINOL [Concomitant]
     Indication: HYPERURICAEMIA
     Route: 048
     Dates: start: 20020905, end: 20080318
  8. URALYT [Concomitant]
     Indication: HYPERURICAEMIA
     Route: 048
     Dates: start: 20020905, end: 20080618
  9. NAFTOPIDIL [Concomitant]
     Indication: DYSURIA
     Route: 048
     Dates: start: 20020905, end: 20060808
  10. 1% LIDOCAINE FOR ANESTHESIA [Concomitant]
     Indication: ANAESTHESIA
     Dosage: 1%
     Dates: start: 20080621, end: 20080621

REACTIONS (5)
  - BLOOD CREATININE INCREASED [None]
  - BONE MARROW FAILURE [None]
  - INJECTION SITE REACTION [None]
  - PANCYTOPENIA [None]
  - UNEVALUABLE EVENT [None]
